FAERS Safety Report 17146101 (Version 2)
Quarter: 2019Q4

REPORT INFORMATION
  Report Type: Spontaneous
  Country: NL (occurrence: NL)
  Receive Date: 20191212
  Receipt Date: 20191217
  Transmission Date: 20200122
  Serious: Yes (Disabling)
  Sender: FDA-Public Use
  Company Number: NL-ASTRAZENECA-2019SF74647

PATIENT
  Sex: Male
  Weight: 65 kg

DRUGS (4)
  1. LABETALOL [Suspect]
     Active Substance: LABETALOL\LABETALOL HYDROCHLORIDE
     Indication: DIAPHRAGMATIC HERNIA
     Route: 048
     Dates: start: 2010
  2. HEPSERA [Suspect]
     Active Substance: ADEFOVIR DIPIVOXIL
     Indication: CHRONIC HEPATITIS B
     Route: 048
     Dates: start: 2005
  3. ESOMEPRAZO [Suspect]
     Active Substance: ESOMEPRAZOLE
     Indication: HYPERTENSION
     Route: 048
     Dates: start: 2010
  4. DOXAZOSINE [Suspect]
     Active Substance: DOXAZOSIN MESYLATE
     Indication: HYPERTENSION
     Route: 048
     Dates: start: 2010

REACTIONS (1)
  - Deafness [Recovered/Resolved with Sequelae]
